FAERS Safety Report 8384150 (Version 4)
Quarter: 2013Q4

REPORT INFORMATION
  Report Type: Spontaneous
  Country: US (occurrence: US)
  Receive Date: 20120202
  Receipt Date: 20131121
  Transmission Date: 20140711
  Serious: No
  Sender: FDA-Public Use
  Company Number: US-BIOGENIDEC-2012BI003487

PATIENT
  Age: 56 Year
  Sex: Female

DRUGS (4)
  1. TYSABRI [Suspect]
     Indication: MULTIPLE SCLEROSIS
     Route: 042
     Dates: start: 20110301, end: 20130201
  2. AMPYRA [Concomitant]
     Indication: MUSCLE SPASTICITY
     Dates: start: 20110101, end: 20130903
  3. AMPYRA [Concomitant]
     Indication: MULTIPLE SCLEROSIS
     Dates: start: 20110101, end: 20130903
  4. OXYCODONE [Concomitant]
     Indication: PAIN IN EXTREMITY

REACTIONS (11)
  - Cataract [Not Recovered/Not Resolved]
  - Balance disorder [Not Recovered/Not Resolved]
  - Vision blurred [Recovered/Resolved]
  - Fall [Recovered/Resolved]
  - Dry mouth [Not Recovered/Not Resolved]
  - Urine odour abnormal [Recovered/Resolved]
  - Blindness unilateral [Recovered/Resolved]
  - Dysstasia [Recovered/Resolved]
  - Mobility decreased [Recovered/Resolved]
  - Urinary tract infection [Recovered/Resolved]
  - Multiple sclerosis [Recovered/Resolved]
